FAERS Safety Report 7707327-6 (Version None)
Quarter: 2011Q3

REPORT INFORMATION
  Report Type: 
  Country: None (occurrence: None)
  Receive Date: 20110824
  Receipt Date: 20110301
  Transmission Date: 20111222
  Serious: No
  Sender: FDA-Public Use
  Company Number: US-MYLANLABS-2011S1004312

PATIENT
  Sex: Male

DRUGS (1)
  1. LISINOPRIL [Suspect]
     Indication: BLOOD PRESSURE
     Route: 048
     Dates: start: 20110225

REACTIONS (5)
  - ANXIETY [None]
  - DRUG EFFECT INCREASED [None]
  - LETHARGY [None]
  - DIZZINESS [None]
  - FEELING ABNORMAL [None]
